FAERS Safety Report 9478477 (Version 1)
Quarter: 2013Q3

REPORT INFORMATION
  Report Type: Spontaneous
  Country: US (occurrence: None)
  Receive Date: 20130822
  Receipt Date: 20130822
  Transmission Date: 20140515
  Serious: Yes (Death, Life-Threatening, Hospitalization)
  Sender: FDA-Public Use
  Company Number: FK201301917

PATIENT
  Age: 64 Year
  Sex: Female

DRUGS (18)
  1. NEBUPENT [Suspect]
     Indication: PROPHYLAXIS
     Dosage: RESPIRATORY
     Dates: start: 20130503
  2. NIVOLUMAB [Suspect]
     Indication: NON-SMALL CELL LUNG CANCER
     Dates: start: 20130304, end: 20130304
  3. IPILIMUMAB [Suspect]
     Indication: NON-SMALL CELL LUNG CANCER
     Dates: start: 20130304
  4. DEXLANSOPRAZOLE [Concomitant]
  5. ZOLOFT (SERTRALINE) [Concomitant]
  6. XANAX (ALPRAZOLAM) [Concomitant]
  7. CELEBREX (CELECOXIB) [Concomitant]
  8. DILAUDID (HYDROMORPHONE HYDROCHLORIDE) [Concomitant]
  9. MULTIVITAMINS (VIGRAN) [Concomitant]
  10. VITAMIN D (EROGCALCIFEROL) [Concomitant]
  11. CALCIUM (CALCIUM) [Concomitant]
  12. COLQ10 (UBIDECARENONE) [Concomitant]
  13. SENNA PLUS (DOCUSATE SODIUM+ SENNA) (SENNA ALEXANDRINA) [Concomitant]
  14. TYLENOL EXTRA STRENGH (PARACETAMOL) [Concomitant]
  15. VITAMIN C [Concomitant]
  16. CRESTOR (ROSUVASTATIN CALCIUM) (ROSVASTATIN) [Concomitant]
  17. MORPHINE [Concomitant]
  18. GUAIFENESIN (GUAIFENESIN) [Concomitant]

REACTIONS (7)
  - Malignant neoplasm progression [None]
  - Bronchospasm [None]
  - Pneumonitis [None]
  - Axillary mass [None]
  - Thrombocytopenia [None]
  - Lung neoplasm malignant [None]
  - Liver disorder [None]
